FAERS Safety Report 5096232-2 (Version None)
Quarter: 2006Q3

REPORT INFORMATION
  Report Type: 
  Country: None (occurrence: None)
  Receive Date: 20060905
  Receipt Date: 20050307
  Transmission Date: 20061208
  Serious: Yes (Death, Hospitalization, Other)
  Sender: FDA-Public Use
  Company Number: JP-MERCK-0503USA05012

PATIENT
  Age: 51 Year
  Sex: Male
  Weight: 63 kg

DRUGS (6)
  1. DECADRON [Suspect]
     Indication: MULTIPLE MYELOMA
     Route: 048
     Dates: start: 20041129, end: 20050222
  2. THALIDOMIDE [Suspect]
     Indication: MULTIPLE MYELOMA
     Route: 048
     Dates: start: 20041129
  3. THALIDOMIDE [Suspect]
     Route: 048
     Dates: start: 20041201
  4. DIFLUCAN [Concomitant]
     Route: 048
     Dates: start: 20030401
  5. MUCOSTA [Concomitant]
     Route: 048
     Dates: start: 20041101
  6. BACTRIM [Concomitant]
     Route: 048
     Dates: start: 20030401

REACTIONS (4)
  - DEEP VEIN THROMBOSIS [None]
  - INFECTION [None]
  - MULTIPLE MYELOMA [None]
  - PULMONARY EMBOLISM [None]
